FAERS Safety Report 8180441-X (Version None)
Quarter: 2012Q1

REPORT INFORMATION
  Report Type: 
  Country: None (occurrence: None)
  Receive Date: 20120302
  Receipt Date: 20120223
  Transmission Date: 20120608
  Serious: Yes (Hospitalization)
  Sender: FDA-Public Use
  Company Number: US-OPTIMER-20120024

PATIENT

DRUGS (5)
  1. DIFICID [Suspect]
     Indication: DIARRHOEA
  2. DIFICID [Suspect]
     Indication: WEIGHT DECREASED
  3. XANAX [Concomitant]
     Dosage: UNK
  4. DIFICID [Suspect]
     Indication: CLOSTRIDIAL INFECTION
     Dosage: 200 MG, BID
     Route: 048
     Dates: start: 20120109, end: 20120101
  5. PREDNISONE TAB [Concomitant]
     Indication: ASTHMA
     Dosage: UNK, PRN

REACTIONS (4)
  - DIARRHOEA [None]
  - DRUG INEFFECTIVE [None]
  - CLOSTRIDIAL INFECTION [None]
  - DISEASE RECURRENCE [None]
